FAERS Safety Report 25363487 (Version 1)
Quarter: 2025Q2

REPORT INFORMATION
  Report Type: Spontaneous
  Country: US (occurrence: US)
  Receive Date: 20250527
  Receipt Date: 20250527
  Transmission Date: 20250716
  Serious: Yes (Other)
  Sender: BRISTOL-MYERS SQUIBB COMPANY
  Company Number: US-BRISTOL-MYERS SQUIBB COMPANY-2025-070807

PATIENT
  Age: 77 Year
  Sex: Male

DRUGS (22)
  1. REVLIMID [Suspect]
     Active Substance: LENALIDOMIDE
     Indication: Plasma cell myeloma
     Dosage: DRUG SEPARATE DOSAGE NUMBER: 21
  2. DARATUMUMAB [Suspect]
     Active Substance: DARATUMUMAB
     Indication: Plasma cell myeloma
  3. DEXAMETHASONE [Suspect]
     Active Substance: DEXAMETHASONE
     Indication: Plasma cell myeloma
     Dosage: TAKE 5 TABLETS EVERY 7 DAYS BY MOUTH ONCE A DAY, EVERY 7 DAYS.
     Route: 048
     Dates: start: 20241030
  4. DEXAMETHASONE [Suspect]
     Active Substance: DEXAMETHASONE
     Dosage: TAKE 1 CAPSULE (20 MG) IN THE MORNING BY MOUTH.
     Route: 048
  5. DEXAMETHASONE [Suspect]
     Active Substance: DEXAMETHASONE
  6. NORVASC [Concomitant]
     Active Substance: AMLODIPINE BESYLATE
     Indication: Product used for unknown indication
     Dosage: TAKE 1 TABLET BY MOUTH IN THE MORNING
     Route: 048
     Dates: start: 20250507
  7. XARELTO [Concomitant]
     Active Substance: RIVAROXABAN
     Indication: Deep vein thrombosis
     Dosage: TAKE 1 TABLET BY MOUTH IN THE MORNING
     Route: 048
     Dates: start: 20250411
  8. VALTREX [Concomitant]
     Active Substance: VALACYCLOVIR HYDROCHLORIDE
     Indication: Varicella zoster virus infection
     Dosage: TAKE 1 TABLET BY MOUTH TWICE A DAY
     Route: 048
     Dates: start: 20250303
  9. PRILOSEC [Concomitant]
     Active Substance: OMEPRAZOLE MAGNESIUM
     Indication: Gastrooesophageal reflux disease
     Dosage: TAKE 1 CAPSULE (20 MG) IN THE MORNING BY MOUTH.
     Route: 048
     Dates: start: 20241111
  10. CALTRATE [Concomitant]
     Active Substance: CALCIUM CARBONATE
     Indication: Product used for unknown indication
     Dosage: TAKE 2 TABLETS (1,200 MG) IN THE MORNING AND 2 TABLETS (1,200 MG) BEFORE BEDTIME BY MOUTH.
     Route: 048
  11. DDD CHOLECALCIFEROL (VITAMIN D3) [Concomitant]
     Indication: Product used for unknown indication
     Dosage: TAKE 1 CAPSULE IN THE MORNING AND 1 CAPSULE BEFORE BEDTIME BY MOUTH. (UNSURE OF DOSE).
     Route: 048
  12. ENULOSE [Concomitant]
     Active Substance: LACTULOSE
     Indication: Constipation
     Dosage: TAKE 15 ML BY MOUTH 3 TIMES DAILY AS NEEDED FOR CONSTIPATION.
     Route: 048
     Dates: start: 20240115
  13. SENNA AND DOCUSATE SODIUM [Concomitant]
     Active Substance: DOCUSATE SODIUM\SENNOSIDES
     Indication: Product used for unknown indication
     Dosage: 8.6-50 MG TABLET TAKE 1 TABLET IN THE MORNING BY MOUTH.
     Route: 048
     Dates: start: 20231226
  14. ULTRAMOL [PARACETAMOL] [Concomitant]
     Indication: Pain
     Dosage: TAKE 1 TABLET (50 MG) 30 TABLET EVERY 8 HOURS AS NEEDED BY MOUTH FOR
     Route: 048
     Dates: start: 20231201
  15. ONDANSETRON [Concomitant]
     Active Substance: ONDANSETRON
     Indication: Nausea
     Dosage: EVERY 8 HOURS AS NEEDED BY MOUTH FOR NAUSEA/EMESIS DISSOLVE TABLET ON TOP OF TONGUE, THEN SWALLOW WI
     Route: 048
     Dates: start: 20231130
  16. ONDANSETRON [Concomitant]
     Active Substance: ONDANSETRON
     Indication: Vomiting
  17. FEXOFENADINE [Concomitant]
     Active Substance: FEXOFENADINE HYDROCHLORIDE
     Indication: Product used for unknown indication
     Dosage: TAKE 1 TABLET (180 MG) IN THE MORNING BY MOUTH.
     Route: 048
  18. OMEGA 3 EPA DHA [Concomitant]
     Indication: Product used for unknown indication
     Route: 048
     Dates: start: 20130730
  19. ZOLEDRONIC ACID [Concomitant]
     Active Substance: ZOLEDRONIC ACID
     Indication: Product used for unknown indication
     Route: 042
  20. CALCIUM [Concomitant]
     Active Substance: CALCIUM
     Indication: Product used for unknown indication
     Route: 048
  21. ERGOCALCIFEROL [Concomitant]
     Active Substance: ERGOCALCIFEROL
     Indication: Product used for unknown indication
     Route: 048
  22. ZOMETA [Concomitant]
     Active Substance: ZOLEDRONIC ACID
     Indication: Product used for unknown indication

REACTIONS (11)
  - Plasma cell myeloma [Unknown]
  - Cough [Unknown]
  - Red blood cell count decreased [Unknown]
  - Haemoglobin decreased [Unknown]
  - Haematocrit decreased [Unknown]
  - Red cell distribution width increased [Unknown]
  - Lymphocyte count decreased [Unknown]
  - Monocyte count increased [Unknown]
  - Blood potassium decreased [Unknown]
  - Blood glucose increased [Unknown]
  - Tremor [Unknown]

NARRATIVE: CASE EVENT DATE: 20250430
